FAERS Safety Report 12283972 (Version 1)
Quarter: 2016Q2

REPORT INFORMATION
  Report Type: Report from Study
  Country: US (occurrence: US)
  Receive Date: 20160419
  Receipt Date: 20160419
  Transmission Date: 20160815
  Serious: Yes (Other)
  Sender: FDA-Public Use
  Company Number: US-GILEAD-2016-0206270

PATIENT
  Age: 76 Year
  Sex: Female

DRUGS (1)
  1. IDELALISIB [Suspect]
     Active Substance: IDELALISIB
     Indication: NON-HODGKIN^S LYMPHOMA
     Dosage: 100 MG, BID
     Route: 048

REACTIONS (3)
  - Malaise [Unknown]
  - Cognitive disorder [Unknown]
  - Hypersomnia [Unknown]
